FAERS Safety Report 11499219 (Version 1)
Quarter: 2015Q3

REPORT INFORMATION
  Report Type: Report from Study
  Country: US (occurrence: US)
  Receive Date: 20150913
  Receipt Date: 20150913
  Transmission Date: 20151125
  Serious: No
  Sender: FDA-Public Use
  Company Number: US-AMGEN-USASL2015089355

PATIENT
  Age: 86 Year
  Sex: Female

DRUGS (1)
  1. ENBREL [Suspect]
     Active Substance: ETANERCEPT
     Indication: RHEUMATOID ARTHRITIS
     Dosage: UNK UNK, UNK
     Route: 065
     Dates: start: 2002

REACTIONS (4)
  - Alopecia [Not Recovered/Not Resolved]
  - Mobility decreased [Unknown]
  - Pain [Not Recovered/Not Resolved]
  - Joint injury [Unknown]

NARRATIVE: CASE EVENT DATE: 2015
